FAERS Safety Report 9668018 (Version 1)
Quarter: 2013Q4

REPORT INFORMATION
  Report Type: Spontaneous
  Country: US (occurrence: US)
  Receive Date: 20131104
  Receipt Date: 20131104
  Transmission Date: 20140711
  Serious: Yes (Other)
  Sender: FDA-Public Use
  Company Number: US-TEVA-441236USA

PATIENT
  Sex: Female

DRUGS (2)
  1. AZILECT [Suspect]
     Indication: PARKINSON^S DISEASE
  2. TRAMADOL [Interacting]
     Indication: PAIN

REACTIONS (4)
  - Hip fracture [Recovered/Resolved]
  - Osteoporosis [Not Recovered/Not Resolved]
  - Pain [Unknown]
  - Labelled drug-drug interaction medication error [Unknown]
